FAERS Safety Report 21254739 (Version 1)
Quarter: 2022Q3

REPORT INFORMATION
  Report Type: Other
  Country: GB (occurrence: GB)
  Receive Date: 20220825
  Receipt Date: 20220825
  Transmission Date: 20221026
  Serious: No
  Sender: FDA-Public Use
  Company Number: None

PATIENT
  Age: 75 Year
  Sex: Male
  Weight: 80 kg

DRUGS (5)
  1. SERTRALINE [Suspect]
     Active Substance: SERTRALINE HYDROCHLORIDE
     Indication: Ill-defined disorder
     Dosage: UNK
     Route: 065
     Dates: start: 20220810
  2. ALLOPURINOL [Concomitant]
     Active Substance: ALLOPURINOL
     Indication: Ill-defined disorder
     Dosage: 1 DOSAGE FORM, QD (1 TAB DAILY)
     Route: 065
     Dates: start: 20200710
  3. DIAZEPAM [Concomitant]
     Active Substance: DIAZEPAM
     Indication: Ill-defined disorder
     Dosage: 2 DOSAGE FORM, TID (TAKE TWO THREE TIMES DAILY ( REDUCE BY HALF TABLET EACH MONTH TO ZERO IF REQUIRE
     Route: 065
     Dates: start: 20220801
  4. RANITIDINE [Concomitant]
     Active Substance: RANITIDINE
     Indication: Ill-defined disorder
     Dosage: 1 DOSAGE FORM, BID (1 TAB TWICE DAILY )
     Route: 065
     Dates: start: 20200710
  5. SERTRALINE [Concomitant]
     Active Substance: SERTRALINE HYDROCHLORIDE
     Indication: Ill-defined disorder
     Dosage: 1 DOSAGE FORM, QD (TAKE ONE TAB DAILY)
     Route: 065
     Dates: start: 20220722, end: 20220808

REACTIONS (1)
  - Headache [Recovered/Resolved]

NARRATIVE: CASE EVENT DATE: 20220810
